FAERS Safety Report 16123823 (Version 1)
Quarter: 2019Q1

REPORT INFORMATION
  Report Type: Spontaneous
  Country: US (occurrence: US)
  Receive Date: 20190327
  Receipt Date: 20190327
  Transmission Date: 20190418
  Serious: Yes (Other)
  Sender: FDA-Public Use
  Company Number: US-GILEAD-2019-0398615

PATIENT
  Sex: Female

DRUGS (2)
  1. EPCLUSA [Suspect]
     Active Substance: SOFOSBUVIR\VELPATASVIR
     Indication: CHRONIC HEPATITIS C
     Dosage: UNK
     Route: 065
     Dates: start: 20181107, end: 201903
  2. RIBAVIRIN. [Suspect]
     Active Substance: RIBAVIRIN
     Indication: CHRONIC HEPATITIS C
     Dosage: UNK
     Route: 065
     Dates: start: 20181107, end: 201903

REACTIONS (8)
  - Tearfulness [Not Recovered/Not Resolved]
  - Mental disorder [Unknown]
  - Feeling abnormal [Unknown]
  - Hepatocellular carcinoma [Not Recovered/Not Resolved]
  - Nausea [Unknown]
  - Hepatic cirrhosis [Not Recovered/Not Resolved]
  - Influenza [Unknown]
  - Dyspnoea [Unknown]

NARRATIVE: CASE EVENT DATE: 201811
